FAERS Safety Report 6362147-2 (Version None)
Quarter: 2009Q3

REPORT INFORMATION
  Report Type: 
  Country: None (occurrence: None)
  Receive Date: 20090918
  Receipt Date: 20090909
  Transmission Date: 20100115
  Serious: Yes (Other)
  Sender: FDA-Public Use
  Company Number: CA-GENENTECH-268168

PATIENT
  Sex: Female
  Weight: 54.422 kg

DRUGS (1)
  1. OMALIZUMAB [Suspect]
     Indication: ASTHMA
     Dosage: 300 MG, 1/MONTH
     Route: 058
     Dates: start: 20080714

REACTIONS (7)
  - ASTHMA [None]
  - BRONCHITIS [None]
  - COUGH [None]
  - HEART RATE INCREASED [None]
  - INCREASED UPPER AIRWAY SECRETION [None]
  - MEDICATION ERROR [None]
  - NASAL CONGESTION [None]
